FAERS Safety Report 8009511-3 (Version None)
Quarter: 2011Q4

REPORT INFORMATION
  Report Type: 
  Country: None (occurrence: None)
  Receive Date: 20111227
  Receipt Date: 20111222
  Transmission Date: 20120403
  Serious: Yes (Hospitalization)
  Sender: FDA-Public Use
  Company Number: DE-MERCK-1112DEU00065

PATIENT
  Age: 83 Year
  Sex: Male

DRUGS (1)
  1. COZAAR [Suspect]
     Indication: HYPERTENSION
     Route: 048
     Dates: end: 20110101

REACTIONS (4)
  - HEART RATE INCREASED [None]
  - PALPITATIONS [None]
  - ARRHYTHMIA [None]
  - PULSE PRESSURE INCREASED [None]
